FAERS Safety Report 8376044-4 (Version None)
Quarter: 2012Q2

REPORT INFORMATION
  Report Type: 
  Country: None (occurrence: None)
  Receive Date: 20120522
  Receipt Date: 20120515
  Transmission Date: 20120825
  Serious: Yes (Other)
  Sender: FDA-Public Use
  Company Number: PHHY2012BR033066

PATIENT
  Sex: Female
  Weight: 70 kg

DRUGS (4)
  1. EXFORGE HCT [Suspect]
     Dosage: 1 DF (160/5/25 MG), DAILY
     Route: 048
  2. EXFORGE HCT [Suspect]
     Dosage: 1 DF (160/5/12.5 MG), DAILY
     Route: 048
  3. EXFORGE HCT [Suspect]
     Indication: HYPERTENSION
     Dosage: 1 DF (160/5/12.5 MG), DAILY
     Route: 048
  4. LEVOTHYROXINE SODIUM [Concomitant]
     Indication: WEIGHT CONTROL
     Dosage: 1 DF, DAILY
     Route: 048

REACTIONS (5)
  - PAIN IN EXTREMITY [None]
  - WEIGHT INCREASED [None]
  - DRUG ADMINISTRATION ERROR [None]
  - INFLAMMATION [None]
  - OEDEMA PERIPHERAL [None]
